FAERS Safety Report 4607030-5 (Version None)
Quarter: 2005Q2

REPORT INFORMATION
  Report Type: 
  Country: None (occurrence: None)
  Receive Date: 20050310
  Receipt Date: 20050224
  Transmission Date: 20051028
  Serious: Yes (Hospitalization)
  Sender: FDA-Public Use
  Company Number: 240205001/179 AE

PATIENT
  Age: 71 Year
  Sex: Male
  Weight: 95.2554 kg

DRUGS (2)
  1. TESTIM [Suspect]
     Indication: BLOOD TESTOSTERONE DECREASED
     Dosage: 50 MG, DAILY, TRANSDERMAL; 2 TUBES
     Route: 062
  2. CARDIZEM [Concomitant]

REACTIONS (2)
  - ATRIAL FIBRILLATION [None]
  - GASTRIC POLYPS [None]
